FAERS Safety Report 6251148-0 (Version None)
Quarter: 2009Q2

REPORT INFORMATION
  Report Type: 
  Country: None (occurrence: None)
  Receive Date: 20090630
  Receipt Date: 20090429
  Transmission Date: 20091009
  Serious: No
  Sender: FDA-Public Use
  Company Number: US-ABBOTT-09P-163-0570434-00

PATIENT
  Sex: Male

DRUGS (3)
  1. ZEMPLAR [Suspect]
     Indication: HYPERPARATHYROIDISM
     Dates: start: 20090501
  2. RENVELA [Concomitant]
     Indication: DRUG USE FOR UNKNOWN INDICATION
     Dates: start: 20080401
  3. HUMALOG [Concomitant]
     Indication: DRUG USE FOR UNKNOWN INDICATION
     Dosage: 50 UNITS AT NIGHT

REACTIONS (2)
  - DRY MOUTH [None]
  - MYALGIA [None]
